FAERS Safety Report 22107512 (Version 1)
Quarter: 2023Q1

REPORT INFORMATION
  Report Type: Spontaneous
  Country: GB (occurrence: GB)
  Receive Date: 20230317
  Receipt Date: 20230317
  Transmission Date: 20230418
  Serious: Yes (Other)
  Sender: FDA-Public Use
  Company Number: GB-MHRA-MED-202303060808244860-WPJNV

PATIENT
  Age: 32 Year
  Sex: Female

DRUGS (1)
  1. SAXENDA [Suspect]
     Active Substance: LIRAGLUTIDE
     Indication: Weight control
     Dosage: 0.6
     Dates: start: 20230228

REACTIONS (2)
  - Heart rate abnormal [Recovering/Resolving]
  - Back pain [Recovering/Resolving]
